FAERS Safety Report 25305495 (Version 1)
Quarter: 2025Q2

REPORT INFORMATION
  Report Type: Spontaneous
  Country: US (occurrence: US)
  Receive Date: 20250513
  Receipt Date: 20250513
  Transmission Date: 20250716
  Serious: Yes (Disabling, Other)
  Sender: SANOFI AVENTIS
  Company Number: US-COSETTE-CP2025US000469

PATIENT
  Age: 68 Year
  Sex: Male
  Weight: 78.75 kg

DRUGS (2)
  1. AMBIEN [Suspect]
     Active Substance: ZOLPIDEM TARTRATE
     Indication: Product used for unknown indication
  2. NALOXONE [Suspect]
     Active Substance: NALOXONE
     Indication: Product used for unknown indication

REACTIONS (5)
  - Neuropathy peripheral [Unknown]
  - Tinnitus [Unknown]
  - Muscular weakness [Unknown]
  - Victim of abuse [Unknown]
  - Product administered from unauthorised provider [Unknown]

NARRATIVE: CASE EVENT DATE: 20210725
